FAERS Safety Report 8021189-1 (Version None)
Quarter: 2012Q1

REPORT INFORMATION
  Report Type: 
  Country: None (occurrence: None)
  Receive Date: 20120104
  Receipt Date: 20111230
  Transmission Date: 20120608
  Serious: Yes (Hospitalization)
  Sender: FDA-Public Use
  Company Number: ES-BRISTOL-MYERS SQUIBB COMPANY-13435938

PATIENT
  Age: 75 Year
  Sex: Male
  Weight: 67 kg

DRUGS (6)
  1. ASPIRIN [Concomitant]
     Route: 048
  2. CARBOPLATIN [Suspect]
     Indication: NON-SMALL CELL LUNG CANCER
     Route: 042
     Dates: start: 20060504
  3. PACLITAXEL [Suspect]
     Indication: NON-SMALL CELL LUNG CANCER
     Route: 042
     Dates: start: 20060504
  4. PANTOPRAZOLE SODIUM [Concomitant]
     Route: 048
     Dates: start: 20060323
  5. DOXAZOSIN MESYLATE [Concomitant]
     Route: 048
  6. DEXAMETHASONE [Concomitant]
     Indication: PREMEDICATION
     Route: 042
     Dates: start: 20060504, end: 20060504

REACTIONS (3)
  - INFECTION [None]
  - HAEMOPTYSIS [None]
  - HYPERGLYCAEMIA [None]
